FAERS Safety Report 11699981 (Version 1)
Quarter: 2015Q4

REPORT INFORMATION
  Report Type: Spontaneous
  Country: US (occurrence: None)
  Receive Date: 20151103
  Receipt Date: 20151103
  Transmission Date: 20160304
  Serious: Yes (Life-Threatening, Other)
  Sender: FDA-Public Use
  Company Number: 54973 AE # 1652

PATIENT
  Age: 3 Year
  Sex: Female

DRUGS (1)
  1. COLD N COUGH 4 KIDS [Suspect]
     Active Substance: HOMEOPATHICS
     Indication: NASOPHARYNGITIS
     Dosage: 1 TSP HS X 1 DOSE

REACTIONS (8)
  - Head banging [None]
  - Screaming [None]
  - Apnoea [None]
  - Loss of consciousness [None]
  - Fatigue [None]
  - Crying [None]
  - Drug hypersensitivity [None]
  - Abnormal behaviour [None]

NARRATIVE: CASE EVENT DATE: 20151015
